FAERS Safety Report 9124416 (Version 1)
Quarter: 2013Q1

REPORT INFORMATION
  Report Type: Spontaneous
  Country: AE (occurrence: AE)
  Receive Date: 20130116
  Receipt Date: 20130116
  Transmission Date: 20140127
  Serious: Yes (Other)
  Sender: FDA-Public Use
  Company Number: AE-PFIZER INC-2013011286

PATIENT
  Age: 3 Year
  Sex: Male
  Weight: 17.5 kg

DRUGS (2)
  1. EPINEPHRINE [Suspect]
     Dosage: 1 MG VIA NEBULIZER
     Route: 055
  2. EPINEPHRINE [Suspect]
     Dosage: 1 MG
     Route: 042

REACTIONS (11)
  - Incorrect route of drug administration [Unknown]
  - Overdose [Unknown]
  - Flushing [Unknown]
  - Hypertension [Recovered/Resolved]
  - Hypoxia [Recovering/Resolving]
  - Dyspnoea [Unknown]
  - Chest X-ray abnormal [Recovering/Resolving]
  - Atrial tachycardia [Recovered/Resolved]
  - Wandering pacemaker [Unknown]
  - Electrocardiogram ST segment elevation [Unknown]
  - Arteriospasm coronary [None]
